FAERS Safety Report 4360636-3 (Version None)
Quarter: 2004Q2

REPORT INFORMATION
  Report Type: 
  Country: None (occurrence: None)
  Receive Date: 20040519
  Receipt Date: 20040519
  Transmission Date: 20050107
  Serious: No
  Sender: FDA-Public Use
  Company Number: None

PATIENT
  Age: 78 Year
  Sex: Female
  Weight: 50 kg

DRUGS (1)
  1. LINEZOLID 600 MG PHARMACIA [Suspect]
     Indication: OSTEOMYELITIS
     Dosage: 600 MG TWICE A DA ORAL
     Route: 048
     Dates: start: 20040421, end: 20040518

REACTIONS (1)
  - BONE MARROW DEPRESSION [None]
